FAERS Safety Report 20263454 (Version 2)
Quarter: 2022Q1

REPORT INFORMATION
  Report Type: Spontaneous
  Country: CN (occurrence: CN)
  Receive Date: 20211231
  Receipt Date: 20220105
  Transmission Date: 20220423
  Serious: Yes (Other)
  Sender: FDA-Public Use
  Company Number: CN-BAYER-2021A275952

PATIENT
  Age: 73 Year
  Sex: Male

DRUGS (3)
  1. RIVAROXABAN [Interacting]
     Active Substance: RIVAROXABAN
     Indication: Platelet aggregation inhibition
     Dosage: 10 MG, QD
     Route: 048
     Dates: start: 20211224, end: 20211226
  2. ASPIRIN [Interacting]
     Active Substance: ASPIRIN
     Indication: Platelet aggregation inhibition
     Dosage: 100 MG, QD
     Route: 045
     Dates: start: 20211221, end: 20211226
  3. PLAVIX [Interacting]
     Active Substance: CLOPIDOGREL BISULFATE
     Indication: Platelet aggregation inhibition
     Dosage: 75 MG, QD
     Route: 045
     Dates: start: 20211221, end: 20211226

REACTIONS (6)
  - Coagulopathy [Unknown]
  - Prothrombin time prolonged [Unknown]
  - Melaena [Unknown]
  - Off label use [Unknown]
  - Incorrect route of product administration [Unknown]
  - Labelled drug-drug interaction medication error [Unknown]

NARRATIVE: CASE EVENT DATE: 20211221
